FAERS Safety Report 4316236-4 (Version None)
Quarter: 2004Q1

REPORT INFORMATION
  Report Type: 
  Country: None (occurrence: None)
  Receive Date: 20040312
  Receipt Date: 20030911
  Transmission Date: 20041129
  Serious: Yes (Hospitalization)
  Sender: FDA-Public Use
  Company Number: JP-ROCHE-346721

PATIENT
  Age: 14 Year
  Sex: Female

DRUGS (8)
  1. DENOSINE IV [Suspect]
     Indication: CYTOMEGALOVIRUS VIRAEMIA
     Route: 041
     Dates: start: 20020924, end: 20021018
  2. DENOSINE IV [Suspect]
     Dosage: RESTARTED DUE TO POSITIVE CMV.
     Route: 041
     Dates: start: 20021217, end: 20030117
  3. IMMUNE GLOBULIN INTRAVENOUS (HUMAN) [Suspect]
     Dosage: A HUMAN NORMAL IMMUNOGLOBULIN.
     Route: 030
     Dates: start: 20020924, end: 20020926
  4. CELLCEPT [Concomitant]
     Route: 048
     Dates: start: 20020730
  5. MEDROL [Concomitant]
     Route: 048
     Dates: start: 20020730
  6. TAKEPRON [Concomitant]
     Route: 048
     Dates: start: 20020730
  7. SEPAMIT [Concomitant]
     Route: 048
     Dates: start: 20020803
  8. MINIPRESS [Concomitant]
     Route: 048
     Dates: start: 20020806

REACTIONS (1)
  - NEPHROTIC SYNDROME [None]
